FAERS Safety Report 23161188 (Version 3)
Quarter: 2024Q4

REPORT INFORMATION
  Report Type: Spontaneous
  Country: NO (occurrence: NO)
  Receive Date: 20231108
  Receipt Date: 20241216
  Transmission Date: 20250115
  Serious: Yes (Hospitalization, Other)
  Sender: MYLAN
  Company Number: NO-MYLANLABS-2023M1113675

PATIENT
  Sex: Female
  Weight: 110 kg

DRUGS (2)
  1. TAMOXIFEN [Suspect]
     Active Substance: TAMOXIFEN
     Indication: Breast cancer
     Dosage: 20 MILLIGRAM, QD (DAILY) (FILM COATED TABLET)
     Route: 048
     Dates: start: 20100101, end: 2022
  2. TAMOXIFEN [Suspect]
     Active Substance: TAMOXIFEN
     Dosage: 20 MILLIGRAM, QD (DAILY) (FILM COATED TABLET)
     Route: 048
     Dates: start: 201006, end: 202204

REACTIONS (7)
  - Uterine haemorrhage [Unknown]
  - Endometrial cancer [Recovered/Resolved]
  - Endometrial hyperplasia [Unknown]
  - Retinopathy [Not Recovered/Not Resolved]
  - Maculopathy [Unknown]
  - Venous thrombosis [Unknown]
  - Intentional product misuse [Unknown]

NARRATIVE: CASE EVENT DATE: 20220101
